FAERS Safety Report 20193955 (Version 3)
Quarter: 2022Q1

REPORT INFORMATION
  Report Type: Spontaneous
  Country: US (occurrence: US)
  Receive Date: 20211216
  Receipt Date: 20220222
  Transmission Date: 20220424
  Serious: Yes (Hospitalization, Other)
  Sender: FDA-Public Use
  Company Number: US-SANOFI-00893904

PATIENT
  Age: 80 Year
  Sex: Female

DRUGS (1)
  1. DUPIXENT [Suspect]
     Active Substance: DUPILUMAB
     Indication: Dermatitis atopic
     Dosage: 300 MG
     Route: 058

REACTIONS (5)
  - Diarrhoea [Unknown]
  - Vomiting [Unknown]
  - Cerebrovascular accident [Unknown]
  - Haematemesis [Unknown]
  - Malaise [Unknown]

NARRATIVE: CASE EVENT DATE: 20210819
